FAERS Safety Report 9539779 (Version 2)
Quarter: 2013Q3

REPORT INFORMATION
  Report Type: Spontaneous
  Country: US (occurrence: US)
  Receive Date: 20130920
  Receipt Date: 20130920
  Transmission Date: 20140515
  Serious: Yes (Life-Threatening, Hospitalization, Other)
  Sender: FDA-Public Use
  Company Number: US-JNJCH-2007315091

PATIENT
  Age: 28 Year
  Sex: Male

DRUGS (2)
  1. IBUPROFEN [Suspect]
     Dosage: UNK
     Route: 048
  2. ACETAMINOPHEN [Suspect]
     Dosage: 250000 MG, UNK
     Route: 048

REACTIONS (6)
  - Intentional overdose [Unknown]
  - Acute hepatic failure [Unknown]
  - Renal failure acute [Unknown]
  - Rhabdomyolysis [Unknown]
  - Gastrointestinal necrosis [Unknown]
  - Blood creatine phosphokinase increased [Unknown]
